FAERS Safety Report 17192552 (Version 1)
Quarter: 2019Q4

REPORT INFORMATION
  Report Type: Spontaneous
  Country: ES (occurrence: ES)
  Receive Date: 20191223
  Receipt Date: 20191223
  Transmission Date: 20200122
  Serious: Yes (Other)
  Sender: FDA-Public Use
  Company Number: ES-JNJFOC-20191227519

PATIENT
  Age: 36 Year
  Sex: Female

DRUGS (8)
  1. LABETALOL [Interacting]
     Active Substance: LABETALOL\LABETALOL HYDROCHLORIDE
     Dosage: 100 MG, TID
     Route: 065
  2. LABETALOL [Interacting]
     Active Substance: LABETALOL\LABETALOL HYDROCHLORIDE
     Dosage: 100 MG Q6HR
     Route: 065
  3. IBUPROFEN. [Suspect]
     Active Substance: IBUPROFEN
     Indication: PRODUCT USED FOR UNKNOWN INDICATION
     Route: 065
  4. METHYLDOPA. [Interacting]
     Active Substance: METHYLDOPA
     Indication: HYPERTENSION
     Dosage: DOSE INCREASED (NOT SPECIFIED)
     Route: 065
  5. METHYLDOPA. [Interacting]
     Active Substance: METHYLDOPA
     Dosage: 500 MG, TID
     Route: 065
  6. METHYLERGOMETRINE [Suspect]
     Active Substance: METHYLERGONOVINE MALEATE
     Indication: POSTPARTUM HAEMORRHAGE
     Route: 065
  7. LABETALOL [Interacting]
     Active Substance: LABETALOL\LABETALOL HYDROCHLORIDE
     Indication: HYPERTENSION
     Dosage: DOSE INCREASED (NOT SPECIFIED)
     Route: 065
  8. LABETALOL [Interacting]
     Active Substance: LABETALOL\LABETALOL HYDROCHLORIDE
     Dosage: 100 MG, BID
     Route: 065

REACTIONS (5)
  - Drug interaction [Recovered/Resolved]
  - Palpitations [Recovered/Resolved]
  - Dyspnoea [Recovered/Resolved]
  - Pulmonary arterial hypertension [Recovered/Resolved]
  - Hypertension [Recovered/Resolved]
